FAERS Safety Report 5908791-5 (Version None)
Quarter: 2008Q4

REPORT INFORMATION
  Report Type: 
  Country: None (occurrence: None)
  Receive Date: 20081006
  Receipt Date: 20080926
  Transmission Date: 20090506
  Serious: Yes (Hospitalization, Other)
  Sender: FDA-Public Use
  Company Number: PHHY2008BR22802

PATIENT
  Age: 86 Year
  Sex: Female
  Weight: 49 kg

DRUGS (5)
  1. EXELON [Suspect]
     Indication: DEMENTIA ALZHEIMER'S TYPE
     Dosage: 2 CAPSULES DAILY
     Route: 048
     Dates: end: 20080925
  2. STALEVO 100 [Suspect]
     Indication: PARKINSON'S DISEASE
     Dosage: 1 TABLET DAILY
     Route: 048
  3. LORAX [Concomitant]
     Dosage: 1 TABLET DAILY
     Route: 048
  4. ZANIDIP [Concomitant]
     Indication: HYPERTENSION
     Dosage: HALF TABLET IN THE MORNING AND HALF TABLET IN THE AFTERNOON
     Route: 048
  5. CALCIUM [Concomitant]
     Indication: CALCIUM DEFICIENCY
     Dosage: UNK
     Route: 048
     Dates: start: 20080501

REACTIONS (8)
  - ABDOMINAL DISTENSION [None]
  - BLOOD PRESSURE INCREASED [None]
  - CHOKING [None]
  - DYSPHAGIA [None]
  - FLATULENCE [None]
  - PNEUMONIA ASPIRATION [None]
  - URINARY TRACT INFECTION [None]
  - WRONG TECHNIQUE IN DRUG USAGE PROCESS [None]
